FAERS Safety Report 15867896 (Version 1)
Quarter: 2019Q1

REPORT INFORMATION
  Report Type: Spontaneous
  Country: NO (occurrence: NO)
  Receive Date: 20190125
  Receipt Date: 20190125
  Transmission Date: 20190417
  Serious: Yes (Hospitalization, Disabling)
  Sender: FDA-Public Use
  Company Number: NO-MYLANLABS-2019M1006524

PATIENT
  Age: 66 Year
  Sex: Female
  Weight: 62 kg

DRUGS (2)
  1. COPEMYL [Suspect]
     Active Substance: GLATIRAMER ACETATE
     Indication: MULTIPLE SCLEROSIS
     Dosage: 20 MILLIGRAM, QD
     Dates: start: 20170125, end: 20171123
  2. VITAMIN D                          /00107901/ [Concomitant]
     Active Substance: ERGOCALCIFEROL

REACTIONS (3)
  - Lipodystrophy acquired [None]
  - Lipodystrophy acquired [Not Recovered/Not Resolved]
  - Muscle fibrosis [None]

NARRATIVE: CASE EVENT DATE: 201706
